FAERS Safety Report 24743930 (Version 2)
Quarter: 2025Q3

REPORT INFORMATION
  Report Type: Report from Study
  Country: US (occurrence: US)
  Receive Date: 20241217
  Receipt Date: 20250803
  Transmission Date: 20251020
  Serious: Yes (Other)
  Sender: ALEXION PHARMACEUTICALS
  Company Number: US-AstraZeneca-CH-00765613A

PATIENT
  Sex: Male

DRUGS (2)
  1. TEZEPELUMAB [Suspect]
     Active Substance: TEZEPELUMAB
     Route: 065
  2. TEZEPELUMAB [Suspect]
     Active Substance: TEZEPELUMAB

REACTIONS (15)
  - Dyspnoea [Unknown]
  - Obstructive sleep apnoea syndrome [Unknown]
  - Asthma [Unknown]
  - Insomnia [Unknown]
  - Poor quality sleep [Unknown]
  - Hypersomnia [Unknown]
  - Fatigue [Unknown]
  - Weight decreased [Unknown]
  - Eating disorder symptom [Unknown]
  - Neoplasm malignant [Unknown]
  - Chronic obstructive pulmonary disease [Unknown]
  - Nicotine dependence [Unknown]
  - Chronic respiratory failure [Unknown]
  - Lung disorder [Unknown]
  - Hypoxia [Unknown]
